FAERS Safety Report 17715058 (Version 3)
Quarter: 2021Q2

REPORT INFORMATION
  Report Type: Spontaneous
  Country: US (occurrence: US)
  Receive Date: 20200427
  Receipt Date: 20210609
  Transmission Date: 20210716
  Serious: Yes (Other)
  Sender: FDA-Public Use
  Company Number: US-ASTRAZENECA-2020SE54583

PATIENT
  Age: 70 Year
  Sex: Male
  Weight: 92.5 kg

DRUGS (53)
  1. PRILOSEC [Suspect]
     Active Substance: OMEPRAZOLE MAGNESIUM
     Indication: GASTROOESOPHAGEAL REFLUX DISEASE
     Route: 048
     Dates: start: 1989
  2. PRILOSEC [Suspect]
     Active Substance: OMEPRAZOLE MAGNESIUM
     Indication: GASTROOESOPHAGEAL REFLUX DISEASE
     Dosage: GENERIC
     Route: 065
     Dates: start: 1989
  3. NITROGLYCERIN. [Concomitant]
     Active Substance: NITROGLYCERIN
  4. SULFAMETHOXAZOLE [Concomitant]
     Active Substance: SULFAMETHOXAZOLE
  5. CHOLECALCIFEROL [Concomitant]
     Active Substance: CHOLECALCIFEROL
  6. NEXIUM [Suspect]
     Active Substance: ESOMEPRAZOLE MAGNESIUM
     Indication: GASTROOESOPHAGEAL REFLUX DISEASE
     Route: 048
     Dates: start: 198910, end: 201906
  7. PREVACID [Suspect]
     Active Substance: LANSOPRAZOLE
     Indication: GASTROOESOPHAGEAL REFLUX DISEASE
     Route: 065
     Dates: start: 1984, end: 1989
  8. BUPROPION. [Concomitant]
     Active Substance: BUPROPION
  9. METOPROLOL. [Concomitant]
     Active Substance: METOPROLOL
  10. RANITIDINE. [Concomitant]
     Active Substance: RANITIDINE
  11. GEMFIBROZIL. [Concomitant]
     Active Substance: GEMFIBROZIL
  12. CALCIUM CARBONATE. [Concomitant]
     Active Substance: CALCIUM CARBONATE
  13. MAGNESIUM [Concomitant]
     Active Substance: MAGNESIUM
  14. AMLODIPINE [Concomitant]
     Active Substance: AMLODIPINE BESYLATE
  15. CYCLOBENZAPRINE. [Concomitant]
     Active Substance: CYCLOBENZAPRINE
  16. BENZADREX [Concomitant]
  17. NEXIUM 24HR [Suspect]
     Active Substance: ESOMEPRAZOLE MAGNESIUM
     Indication: GASTROOESOPHAGEAL REFLUX DISEASE
     Dosage: 20.0MG UNKNOWN
     Route: 048
     Dates: start: 2014
  18. PREVACID [Suspect]
     Active Substance: LANSOPRAZOLE
     Indication: GASTROOESOPHAGEAL REFLUX DISEASE
     Route: 065
     Dates: start: 198910, end: 201906
  19. KETOCONAZOLE. [Concomitant]
     Active Substance: KETOCONAZOLE
  20. NORVASC [Concomitant]
     Active Substance: AMLODIPINE BESYLATE
  21. VITAMIN B COMPLEX [Concomitant]
     Active Substance: CYANOCOBALAMIN\DEXPANTHENOL\NIACINAMIDE\PYRIDOXINE HYDROCHLORIDE\RIBOFLAVIN 5^-PHOSPHATE SODIUM\THIAMINE HYDROCHLORIDE\VITAMIN B COMPLEX
     Indication: ASTHENIA
  22. NEXIUM [Suspect]
     Active Substance: ESOMEPRAZOLE MAGNESIUM
     Indication: GASTROOESOPHAGEAL REFLUX DISEASE
     Dosage: 20.0MG UNKNOWN
     Route: 048
     Dates: start: 2001, end: 2003
  23. NEXIUM [Suspect]
     Active Substance: ESOMEPRAZOLE MAGNESIUM
     Indication: GASTROOESOPHAGEAL REFLUX DISEASE
     Dosage: GENERIC25.0MG UNKNOWN
     Route: 065
     Dates: start: 2001
  24. AZITHROMYCIN ANHYDROUS. [Concomitant]
     Active Substance: AZITHROMYCIN ANHYDROUS
  25. ORPHENADRINE [Concomitant]
     Active Substance: ORPHENADRINE
  26. TRILIPIX [Concomitant]
     Active Substance: FENOFIBRIC ACID
  27. DIOVAN [Concomitant]
     Active Substance: VALSARTAN
  28. TYLENOL [Concomitant]
     Active Substance: ACETAMINOPHEN
  29. DEMADEX [Concomitant]
     Active Substance: TORSEMIDE
  30. ROLAIDS [Concomitant]
     Active Substance: CALCIUM CARBONATE\MAGNESIUM HYDROXIDE
  31. PRILOSEC OTC [Suspect]
     Active Substance: OMEPRAZOLE MAGNESIUM
     Indication: GASTROOESOPHAGEAL REFLUX DISEASE
     Dosage: 20.0MG UNKNOWN
     Route: 048
     Dates: start: 2003, end: 2019
  32. QUETIAPINE. [Concomitant]
     Active Substance: QUETIAPINE
  33. ISOSORBIDE. [Concomitant]
     Active Substance: ISOSORBIDE
  34. FLUZONE [Concomitant]
     Active Substance: INFLUENZA A VIRUS A/CALIFORNIA/7/2009 X-179A (H1N1) ANTIGEN (FORMALDEHYDE INACTIVATED)\INFLUENZA A VIRUS A/VICTORIA/210/2009 X-187 (H3N2) ANTIGEN (FORMALDEHYDE INACTIVATED)\INFLUENZA B VIRUS B/BRISBANE/60/2008 ANTIGEN (FORMALDEHYDE INACTIVATED)
  35. TRELEGY ELLIPTA [Concomitant]
     Active Substance: FLUTICASONE FUROATE\UMECLIDINIUM BROMIDE\VILANTEROL TRIFENATATE
  36. TOPROL XL [Concomitant]
     Active Substance: METOPROLOL SUCCINATE
  37. PRILOSEC OTC [Suspect]
     Active Substance: OMEPRAZOLE MAGNESIUM
     Indication: GASTROOESOPHAGEAL REFLUX DISEASE
     Route: 048
     Dates: start: 198910, end: 201906
  38. XANAX [Concomitant]
     Active Substance: ALPRAZOLAM
  39. TIOTROPIUM BROMIDE [Concomitant]
     Active Substance: TIOTROPIUM BROMIDE
  40. TAGAMET [Concomitant]
     Active Substance: CIMETIDINE
  41. PREVACID [Suspect]
     Active Substance: LANSOPRAZOLE
     Indication: GASTROOESOPHAGEAL REFLUX DISEASE
     Dosage: 15.0MG UNKNOWN
     Route: 065
     Dates: start: 2016, end: 2019
  42. CRESTOR [Concomitant]
     Active Substance: ROSUVASTATIN CALCIUM
  43. CLINDAMYCIN. [Concomitant]
     Active Substance: CLINDAMYCIN
  44. CEPHALEXIN. [Concomitant]
     Active Substance: CEPHALEXIN
  45. PLAVIX [Concomitant]
     Active Substance: CLOPIDOGREL BISULFATE
  46. SORBIC ACID [Concomitant]
     Active Substance: SORBIC ACID
  47. ALBUTEROL. [Concomitant]
     Active Substance: ALBUTEROL
  48. OXYGEN. [Concomitant]
     Active Substance: OXYGEN
  49. MILK OF MAGNESIA [Concomitant]
     Active Substance: MAGNESIUM HYDROXIDE
  50. PEPTO?BISMOL [Concomitant]
     Active Substance: BISMUTH SUBSALICYLATE
  51. MIRTAZAPINE. [Concomitant]
     Active Substance: MIRTAZAPINE
  52. CLOPIDOGREL [Concomitant]
     Active Substance: CLOPIDOGREL BISULFATE
  53. VITAMINS [Concomitant]
     Active Substance: VITAMINS

REACTIONS (4)
  - Chronic kidney disease [Unknown]
  - Renal failure [Not Recovered/Not Resolved]
  - Renal injury [Unknown]
  - Acute kidney injury [Not Recovered/Not Resolved]

NARRATIVE: CASE EVENT DATE: 2014
